FAERS Safety Report 17548320 (Version 1)
Quarter: 2020Q1

REPORT INFORMATION
  Report Type: Spontaneous
  Country: DE (occurrence: DE)
  Receive Date: 20200317
  Receipt Date: 20200317
  Transmission Date: 20200409
  Serious: Yes (Hospitalization, Other)
  Sender: FDA-Public Use
  Company Number: DE-SA-2020SA063010

PATIENT
  Age: 77 Year
  Sex: Female

DRUGS (14)
  1. SERTRALON [Concomitant]
     Dosage: 50 MG, QD
     Route: 065
  2. ALLOPURINOL. [Concomitant]
     Active Substance: ALLOPURINOL
     Dosage: 100 MG, QD
     Route: 065
  3. FUROSEMID [FUROSEMIDE] [Concomitant]
     Active Substance: FUROSEMIDE
     Dosage: 20 MG, QD
     Route: 065
  4. PREDNISOLON [PREDNISOLONE ACETATE] [Concomitant]
     Dosage: 5 MG, QD
     Route: 065
  5. SITAGLIPTIN [Suspect]
     Active Substance: SITAGLIPTIN
     Dosage: 50 MG, QD
     Route: 065
  6. CALCIUM [Concomitant]
     Active Substance: CALCIUM
     Dosage: 300 MG, QD
     Route: 065
  7. RISPERIDON [Concomitant]
     Active Substance: RISPERIDONE
     Dosage: 0.5 MG, BID
     Route: 065
  8. VIGANTOLETTEN [Concomitant]
     Active Substance: CHOLECALCIFEROL
     Dosage: 1000 IU, QD
     Route: 065
  9. LANTUS [Suspect]
     Active Substance: INSULIN GLARGINE
     Dosage: 16 IU, QD
     Route: 065
  10. FENOFIBRAT [Concomitant]
     Active Substance: FENOFIBRATE
     Dosage: 160 MG, QD
     Route: 065
  11. KALINOR RETARD P [Concomitant]
     Active Substance: POTASSIUM CHLORIDE
     Dosage: 600 MG, QD
     Route: 065
  12. PANTOPRAZOLE [Concomitant]
     Active Substance: PANTOPRAZOLE
     Dosage: 20 MG, QD
     Route: 065
  13. LACTULOSE. [Concomitant]
     Active Substance: LACTULOSE
     Dosage: 5 ML, QD
     Route: 065
  14. NACL [Concomitant]
     Active Substance: SODIUM CHLORIDE
     Dosage: 1 DF, QD
     Route: 065

REACTIONS (3)
  - Hypoglycaemia [Unknown]
  - Depressed level of consciousness [Unknown]
  - Loss of consciousness [Unknown]
